FAERS Safety Report 21043846 (Version 4)
Quarter: 2022Q4

REPORT INFORMATION
  Report Type: Report from Study
  Country: GB (occurrence: GB)
  Receive Date: 20220705
  Receipt Date: 20221206
  Transmission Date: 20230113
  Serious: Yes (Other)
  Sender: FDA-Public Use
  Company Number: GB-ROCHE-3001325

PATIENT
  Age: 62 Year
  Sex: Male
  Weight: 50 kg

DRUGS (11)
  1. BEVACIZUMAB [Suspect]
     Active Substance: BEVACIZUMAB
     Indication: Hepatocellular carcinoma
     Dosage: 800 MG
     Route: 042
     Dates: start: 20211026
  2. ATEZOLIZUMAB [Suspect]
     Active Substance: ATEZOLIZUMAB
     Indication: Hepatocellular carcinoma
     Dosage: 1200 MG EVERY 3 WEEKS
     Route: 041
     Dates: start: 20211026
  3. ATEZOLIZUMAB [Concomitant]
     Active Substance: ATEZOLIZUMAB
     Dosage: UNK
     Route: 065
  4. ATORVASTATIN [Concomitant]
     Active Substance: ATORVASTATIN
     Dosage: UNK UNK, 1X/DAY
     Route: 065
  5. FERROUS SULFATE [Concomitant]
     Active Substance: FERROUS SULFATE
     Dosage: UNK UNK, 1X/DAY
     Route: 065
  6. LANSOPRAZOLE [Concomitant]
     Active Substance: LANSOPRAZOLE
     Indication: Prophylaxis
     Dosage: UNK UNK, 1X/DAY
     Route: 065
  7. LEVOTHYROXINE [Concomitant]
     Active Substance: LEVOTHYROXINE
     Dosage: UNK, 1X/DAY
     Route: 065
     Dates: start: 20220202
  8. LOPERAMIDE [Concomitant]
     Active Substance: LOPERAMIDE
     Dosage: UNK
     Route: 065
     Dates: start: 20220614
  9. MAGNESIUM ASPARTATE [Concomitant]
     Active Substance: MAGNESIUM ASPARTATE
     Dosage: UNK, 1X/DAY
     Route: 065
     Dates: start: 20220615
  10. MAGNESIUM CITRATE [Concomitant]
     Active Substance: MAGNESIUM CITRATE
     Dosage: UNK UNK, 1X/DAY
     Route: 065
     Dates: start: 20211026, end: 20220615
  11. TRAMADOL [Concomitant]
     Active Substance: TRAMADOL
     Indication: Pain in jaw
     Dosage: UNK, AS NEEDED

REACTIONS (5)
  - Hypothyroidism [Not Recovered/Not Resolved]
  - Decreased appetite [Not Recovered/Not Resolved]
  - Weight decreased [Recovered/Resolved]
  - Proteinuria [Recovered/Resolved]
  - Blood magnesium decreased [Not Recovered/Not Resolved]

NARRATIVE: CASE EVENT DATE: 20211224
